FAERS Safety Report 4285819-2 (Version None)
Quarter: 2004Q1

REPORT INFORMATION
  Report Type: 
  Country: None (occurrence: None)
  Receive Date: 20040203
  Receipt Date: 20040121
  Transmission Date: 20041129
  Serious: Yes (Death)
  Sender: FDA-Public Use
  Company Number: HQWYE259407FEB03

PATIENT
  Age: 59 Year
  Sex: Female
  Weight: 152.09 kg

DRUGS (8)
  1. MYLOTARG [Suspect]
     Indication: ACUTE MYELOID LEUKAEMIA
     Dosage: SEE IMAGE
     Route: 042
     Dates: start: 20030107, end: 20030107
  2. MYLOTARG [Suspect]
     Indication: ACUTE MYELOID LEUKAEMIA
     Dosage: SEE IMAGE
     Route: 042
     Dates: start: 20030114, end: 20030114
  3. AMBIEN (ZOLIPIDEM TARTRATE) [Concomitant]
  4. SYNTHYROID (LEVOTHYROXINE SODIUM) [Concomitant]
  5. LEVAQUIN [Concomitant]
  6. HYDROCHLOROTHIAZIDE [Concomitant]
  7. ALLOPURINOL [Concomitant]
  8. MITOXANTRONE [Concomitant]

REACTIONS (51)
  - ACUTE MYOCARDIAL INFARCTION [None]
  - AGITATION [None]
  - ANAEMIA [None]
  - AORTIC ATHEROSCLEROSIS [None]
  - BLOOD ALBUMIN DECREASED [None]
  - BLOOD BICARBONATE INCREASED [None]
  - BLOOD BILIRUBIN INCREASED [None]
  - BLOOD CREATINE PHOSPHOKINASE INCREASED [None]
  - BLOOD PH DECREASED [None]
  - BRADYCARDIA [None]
  - CARDIOMEGALY [None]
  - CHILLS [None]
  - CORONARY ARTERY ATHEROSCLEROSIS [None]
  - DEPRESSED LEVEL OF CONSCIOUSNESS [None]
  - DILATATION VENTRICULAR [None]
  - DYSPNOEA [None]
  - EMPTY SELLA SYNDROME [None]
  - ERYTHEMA [None]
  - FLUID OVERLOAD [None]
  - HAEMOGLOBIN DECREASED [None]
  - HAEMORRHAGE [None]
  - HEPATIC STEATOSIS [None]
  - HEPATOMEGALY [None]
  - HYPOTENSION [None]
  - HYPOXIA [None]
  - LETHARGY [None]
  - MARROW HYPERPLASIA [None]
  - MENTAL STATUS CHANGES [None]
  - MYOCARDIAL INFARCTION [None]
  - MYOCARDIAL ISCHAEMIA [None]
  - OEDEMA PERIPHERAL [None]
  - OXYGEN SATURATION DECREASED [None]
  - PCO2 INCREASED [None]
  - PETECHIAE [None]
  - PNEUMONIA [None]
  - PO2 DECREASED [None]
  - PO2 INCREASED [None]
  - PULMONARY EMBOLISM [None]
  - PULMONARY HAEMORRHAGE [None]
  - PULSE ABSENT [None]
  - PYREXIA [None]
  - RASH [None]
  - RENAL FAILURE [None]
  - RESPIRATORY FAILURE [None]
  - SKIN LESION [None]
  - TACHYPNOEA [None]
  - TENDERNESS [None]
  - THROMBOCYTOPENIA [None]
  - VENTRICULAR HYPERTROPHY [None]
  - WHITE BLOOD CELL COUNT DECREASED [None]
  - WHITE BLOOD CELL COUNT INCREASED [None]
